FAERS Safety Report 6651682-5 (Version None)
Quarter: 2010Q1

REPORT INFORMATION
  Report Type: 
  Country: None (occurrence: None)
  Receive Date: 20100322
  Receipt Date: 20100310
  Transmission Date: 20100710
  Serious: Yes (Other)
  Sender: FDA-Public Use
  Company Number: 1000011973

PATIENT
  Age: 24 Year
  Sex: Male

DRUGS (1)
  1. LEXAPRO [Suspect]
     Dosage: ORAL
     Route: 048
     Dates: start: 20071101

REACTIONS (1)
  - FOOD ALLERGY [None]
